FAERS Safety Report 26115375 (Version 2)
Quarter: 2025Q4

REPORT INFORMATION
  Report Type: Report from Study
  Country: EU (occurrence: EU)
  Receive Date: 20251203
  Receipt Date: 20251231
  Transmission Date: 20260117
  Serious: Yes (Death)
  Sender: CSL BEHRING
  Company Number: EU-BEH-2025227949

PATIENT
  Age: 80 Year
  Sex: Male

DRUGS (1)
  1. HIZENTRA [Suspect]
     Active Substance: HUMAN IMMUNOGLOBULIN G
     Indication: Secondary immunodeficiency
     Dosage: 4 G, (20 ML) QW
     Route: 058
     Dates: start: 20211014

REACTIONS (1)
  - Death [Fatal]

NARRATIVE: CASE EVENT DATE: 20251114
